FAERS Safety Report 7353461-2 (Version None)
Quarter: 2011Q1

REPORT INFORMATION
  Report Type: 
  Country: None (occurrence: None)
  Receive Date: 20110315
  Receipt Date: 20110310
  Transmission Date: 20110831
  Serious: Yes (Life-Threatening, Hospitalization)
  Sender: FDA-Public Use
  Company Number: JP-NAPPMUNDI-MAG-2009-0001170

PATIENT
  Sex: Female

DRUGS (9)
  1. PANTOSIN [Concomitant]
     Indication: CONSTIPATION PROPHYLAXIS
     Dosage: 300 MG, DAILY
     Route: 048
     Dates: start: 20091020
  2. MAGMITT [Concomitant]
     Indication: CONSTIPATION PROPHYLAXIS
     Dosage: 990 MG, DAILY
     Route: 048
     Dates: start: 20091020
  3. LEXIN                              /00052501/ [Concomitant]
     Indication: PRODUCT USED FOR UNKNOWN INDICATION
     Dosage: 200 MG, DAILY
     Route: 048
     Dates: start: 20090331
  4. CHEMOTHERAPEUTICS [Concomitant]
     Indication: PANCREATIC CARCINOMA
     Dosage: UNK
     Dates: start: 20090415, end: 20091110
  5. PROTECADIN [Concomitant]
     Indication: GASTRITIS PROPHYLAXIS
     Dosage: 20 MG, DAILY
     Route: 048
     Dates: start: 20090728
  6. CHEMOTHERAPEUTICS [Concomitant]
     Indication: METASTASES TO LIVER
  7. LOXOPROFEN [Concomitant]
     Indication: CANCER PAIN
     Dosage: 120 MG, DAILY
     Route: 048
     Dates: start: 20090717
  8. OXYCODONE HCL [Suspect]
     Indication: CANCER PAIN
     Dosage: 5 MG, BID
     Route: 048
     Dates: start: 20091020, end: 20091207
  9. CHEMOTHERAPEUTICS [Concomitant]
     Indication: METASTASES TO PERITONEUM

REACTIONS (2)
  - CHOLANGITIS SUPPURATIVE [None]
  - DEVICE OCCLUSION [None]
